FAERS Safety Report 7774443 (Version 2)
Quarter: 2014Q2

REPORT INFORMATION
  Report Type: Spontaneous
  Country: JP (occurrence: JP)
  Receive Date: 20110126
  Receipt Date: 20140605
  Transmission Date: 20141212
  Serious: Yes (Other)
  Sender: FDA-Public Use
  Company Number: PHHY2011JP04004

PATIENT
  Age: 73 Year
  Sex: Male

DRUGS (1)
  1. TASIGNA [Suspect]
     Indication: CHRONIC MYELOID LEUKAEMIA
     Dosage: 800 MG, DAILY
     Route: 048
     Dates: start: 20101116, end: 201012

REACTIONS (3)
  - Renal disorder [Not Recovered/Not Resolved]
  - Blood creatinine increased [Unknown]
  - Condition aggravated [Not Recovered/Not Resolved]
